FAERS Safety Report 10330727 (Version 1)
Quarter: 2014Q3

REPORT INFORMATION
  Report Type: Spontaneous
  Country: IT (occurrence: None)
  Receive Date: 20140717
  Receipt Date: 20140717
  Transmission Date: 20150326
  Serious: Yes (Hospitalization)
  Sender: FDA-Public Use
  Company Number: 2014AP003632

PATIENT
  Age: 90 Year
  Sex: Male

DRUGS (7)
  1. ALIFLUS (FLUTICASONE PROPIONATE, SALMETEROL XINAFOATE) INHALATION POWDER [Concomitant]
  2. ADENURIC (FEBUXOSTAT) FILM COATED TABLET [Concomitant]
  3. CLARITHROMYCIN (CLARITHROMYCIN) TABLET, 250MG [Suspect]
     Active Substance: CLARITHROMYCIN
     Indication: PRODUCT USED FOR UNKNOWN INDICATION
     Route: 048
     Dates: start: 20140510, end: 20140519
  4. LASIX [Concomitant]
     Active Substance: FUROSEMIDE
  5. LACIDIPINE [Concomitant]
     Active Substance: LACIDIPINE
  6. COUMADIN [Suspect]
     Active Substance: WARFARIN SODIUM
     Indication: ATRIAL FIBRILLATION
     Dosage: 1 DF
     Route: 048
     Dates: start: 20131216, end: 20140519
  7. LISINOPRIL DIHYDRATE [Suspect]
     Active Substance: LISINOPRIL

REACTIONS (2)
  - Drug interaction [None]
  - Hypocoagulable state [None]

NARRATIVE: CASE EVENT DATE: 20140519
